FAERS Safety Report 6369973-4 (Version None)
Quarter: 2009Q3

REPORT INFORMATION
  Report Type: 
  Country: None (occurrence: None)
  Receive Date: 20090917
  Receipt Date: 20090907
  Transmission Date: 20100115
  Serious: Yes (Other)
  Sender: FDA-Public Use
  Company Number: SPV1-2009-01800

PATIENT
  Age: 11 Year
  Sex: Female
  Weight: 44 kg

DRUGS (2)
  1. DAYTRANA [Suspect]
     Indication: ATTENTION DEFICIT/HYPERACTIVITY DISORDER
     Dosage: 1X/DAY:QD, TRANSDERMAL
     Route: 062
     Dates: start: 20090902, end: 20090905
  2. ZYRTEC [Concomitant]

REACTIONS (7)
  - CONFUSIONAL STATE [None]
  - DISORIENTATION [None]
  - DISTURBANCE IN ATTENTION [None]
  - HEADACHE [None]
  - INCOHERENT [None]
  - NEUROLOGICAL EXAMINATION ABNORMAL [None]
  - VOMITING [None]
